FAERS Safety Report 5874167-2 (Version None)
Quarter: 2008Q3

REPORT INFORMATION
  Report Type: 
  Country: None (occurrence: None)
  Receive Date: 20080905
  Receipt Date: 20080905
  Transmission Date: 20090109
  Serious: No
  Sender: FDA-Public Use
  Company Number: None

PATIENT
  Age: 65 Year
  Sex: Female
  Weight: 63.5036 kg

DRUGS (1)
  1. EVISTA [Suspect]
     Indication: HORMONE REPLACEMENT THERAPY
     Dosage: 1 X DAY
     Dates: start: 19960101, end: 20080415

REACTIONS (7)
  - ARTHRALGIA [None]
  - ERYTHEMA [None]
  - INSOMNIA [None]
  - JOINT SWELLING [None]
  - OEDEMA PERIPHERAL [None]
  - PAIN IN EXTREMITY [None]
  - SKIN WARM [None]
